FAERS Safety Report 24191080 (Version 1)
Quarter: 2024Q3

REPORT INFORMATION
  Report Type: Report from Study
  Country: GB (occurrence: GB)
  Receive Date: 20240808
  Receipt Date: 20240808
  Transmission Date: 20241016
  Serious: Yes (Hospitalization, Other)
  Sender: NOVARTIS
  Company Number: GB-002147023-NVSC2024GB065411

PATIENT
  Sex: Female

DRUGS (1)
  1. KISQALI [Suspect]
     Active Substance: RIBOCICLIB
     Indication: Product used for unknown indication
     Dosage: UNK
     Route: 065

REACTIONS (5)
  - Pyrexia [Recovered/Resolved]
  - Headache [Not Recovered/Not Resolved]
  - Oropharyngeal pain [Unknown]
  - Chills [Unknown]
  - Neutrophil count decreased [Unknown]

NARRATIVE: CASE EVENT DATE: 20240316
